FAERS Safety Report 5747106-2 (Version None)
Quarter: 2008Q2

REPORT INFORMATION
  Report Type: 
  Country: None (occurrence: None)
  Receive Date: 20080522
  Receipt Date: 20080515
  Transmission Date: 20081010
  Serious: Yes (Hospitalization)
  Sender: FDA-Public Use
  Company Number: PHEH2008US04594

PATIENT
  Sex: Male

DRUGS (1)
  1. ZOMETA [Suspect]
     Indication: METASTASES TO BONE
     Dosage: 4 MG, UNK
     Route: 042
     Dates: start: 20080513

REACTIONS (7)
  - CHILLS [None]
  - CLOSTRIDIAL INFECTION [None]
  - CONFUSIONAL STATE [None]
  - DIARRHOEA [None]
  - NAUSEA [None]
  - PYREXIA [None]
  - VOMITING [None]
